FAERS Safety Report 9706837 (Version 1)
Quarter: 2013Q4

REPORT INFORMATION
  Report Type: Spontaneous
  Country: US (occurrence: US)
  Receive Date: 20131125
  Receipt Date: 20131125
  Transmission Date: 20140711
  Serious: Yes (Other)
  Sender: FDA-Public Use
  Company Number: US-MYLANLABS-2013S1023939

PATIENT
  Age: 63 Year
  Sex: Male
  Weight: 77.11 kg

DRUGS (4)
  1. FENTANYL TRANSDERMAL SYSTEM [Suspect]
     Indication: PAIN
     Dosage: Q72H
     Route: 062
     Dates: end: 20131109
  2. FENTANYL TRANSDERMAL SYSTEM [Suspect]
     Indication: PAIN
     Dosage: Q72H
     Route: 062
     Dates: start: 20131115
  3. FENTANYL TRANSDERMAL SYSTEM [Suspect]
     Indication: PAIN
     Dosage: Q72H
     Route: 062
     Dates: end: 20131109
  4. OXYCONTIN [Suspect]
     Indication: PAIN
     Route: 048
     Dates: start: 20131115

REACTIONS (5)
  - Drug withdrawal syndrome [Not Recovered/Not Resolved]
  - Chest pain [Not Recovered/Not Resolved]
  - Insomnia [Not Recovered/Not Resolved]
  - Self injurious behaviour [Recovered/Resolved]
  - Frustration [Recovered/Resolved]
